FAERS Safety Report 7511656-9 (Version None)
Quarter: 2011Q2

REPORT INFORMATION
  Report Type: 
  Country: None (occurrence: None)
  Receive Date: 20110531
  Receipt Date: 20110525
  Transmission Date: 20111010
  Serious: Yes (Hospitalization, Other)
  Sender: FDA-Public Use
  Company Number: US-PFIZER INC-2011044438

PATIENT
  Sex: Female

DRUGS (5)
  1. CHANTIX [Suspect]
     Indication: SMOKING CESSATION THERAPY
     Dosage: CONTINUING MONTH PACK
     Dates: start: 20080201, end: 20080301
  2. CHANTIX [Suspect]
     Dosage: CONTINUING MONTH PACK
     Dates: start: 20091001, end: 20091101
  3. SEROQUEL [Concomitant]
     Indication: PSYCHOMOTOR HYPERACTIVITY
     Dosage: UNK
     Dates: start: 20070101, end: 20100101
  4. BUSPIRONE [Concomitant]
     Indication: ANXIETY
     Dosage: UNK
     Dates: start: 20050101, end: 20100101
  5. PAXIL [Concomitant]
     Indication: DEPRESSION
     Dosage: UNK
     Dates: start: 20070101, end: 20100101

REACTIONS (8)
  - MULTIPLE INJURIES [None]
  - LACERATION [None]
  - ACUTE RESPIRATORY FAILURE [None]
  - SCAR [None]
  - SUICIDE ATTEMPT [None]
  - INTENTIONAL OVERDOSE [None]
  - DRUG INTERACTION [None]
  - MAJOR DEPRESSION [None]
